FAERS Safety Report 6816382-7 (Version None)
Quarter: 2010Q3

REPORT INFORMATION
  Report Type: 
  Country: None (occurrence: None)
  Receive Date: 20100705
  Receipt Date: 20100628
  Transmission Date: 20110219
  Serious: Yes (Death)
  Sender: FDA-Public Use
  Company Number: PHHY2010MX42172

PATIENT
  Age: 80 Year
  Sex: Female

DRUGS (3)
  1. DIOVAN HCT [Suspect]
     Dosage: 80/12.5 MG (1 TABLET)
     Route: 048
     Dates: start: 20050101
  2. ZELMAC [Suspect]
     Indication: IRRITABLE BOWEL SYNDROME
     Dosage: 6 MG (2 TABLET PER DAY)
     Route: 048
     Dates: start: 20100601
  3. ESPAVEN [Concomitant]

REACTIONS (2)
  - PROCEDURAL COMPLICATION [None]
  - SURGERY [None]
